FAERS Safety Report 6494111-7 (Version None)
Quarter: 2009Q4

REPORT INFORMATION
  Report Type: 
  Country: None (occurrence: None)
  Receive Date: 20091214
  Receipt Date: 20090105
  Transmission Date: 20100525
  Serious: No
  Sender: FDA-Public Use
  Company Number: US-BRISTOL-MYERS SQUIBB COMPANY-14460372

PATIENT
  Age: 2 Decade
  Sex: Female

DRUGS (2)
  1. ABILIFY [Suspect]
     Indication: DEPRESSION
  2. ANTIDEPRESSANT [Concomitant]

REACTIONS (2)
  - ANGER [None]
  - DEPRESSED MOOD [None]
